FAERS Safety Report 7920608-6 (Version None)
Quarter: 2011Q4

REPORT INFORMATION
  Report Type: 
  Country: None (occurrence: None)
  Receive Date: 20111117
  Receipt Date: 20111114
  Transmission Date: 20120403
  Serious: Yes (Hospitalization)
  Sender: FDA-Public Use
  Company Number: PHHO2011TR07762

PATIENT
  Sex: Male
  Weight: 61.8 kg

DRUGS (3)
  1. CALCIUM [Concomitant]
  2. EXJADE [Suspect]
     Indication: IRON OVERLOAD
     Dosage: 2375 MG, UNK
     Route: 048
     Dates: start: 20091207, end: 20110501
  3. TESTOSTERONE PHENYL PROPIONATE INJ [Concomitant]

REACTIONS (2)
  - CONDITION AGGRAVATED [None]
  - CALCIUM DEFICIENCY [None]
